FAERS Safety Report 7533631-0 (Version None)
Quarter: 2011Q2

REPORT INFORMATION
  Report Type: 
  Country: None (occurrence: None)
  Receive Date: 20110608
  Receipt Date: 20060315
  Transmission Date: 20111010
  Serious: Yes (Death)
  Sender: FDA-Public Use
  Company Number: PHMT2005CA00460

PATIENT
  Sex: Male

DRUGS (1)
  1. CLOZAPINE [Suspect]
     Dosage: UNK, UNK
     Dates: start: 20050914

REACTIONS (3)
  - INFARCTION [None]
  - CEREBROVASCULAR ACCIDENT [None]
  - ARRHYTHMIA [None]
